APPROVED DRUG PRODUCT: BUTALBITAL, ASPIRIN AND CAFFEINE
Active Ingredient: ASPIRIN; BUTALBITAL; CAFFEINE
Strength: 325MG;50MG;40MG
Dosage Form/Route: CAPSULE;ORAL
Application: A086231 | Product #002
Applicant: WATSON LABORATORIES INC
Approved: Feb 12, 1985 | RLD: No | RS: No | Type: DISCN